FAERS Safety Report 5227488-0 (Version None)
Quarter: 2007Q1

REPORT INFORMATION
  Report Type: 
  Country: None (occurrence: None)
  Receive Date: 20061201
  Receipt Date: 20061011
  Transmission Date: 20070707
  Serious: No
  Sender: FDA-Public Use
  Company Number: US200610002101

PATIENT
  Age: 57 Year
  Sex: Female

DRUGS (4)
  1. CYMBALTA [Suspect]
     Indication: PAIN
     Dosage: 60 MG, DAILY (1/D)
     Dates: start: 20060601
  2. CELEXA [Concomitant]
  3. METFORMIN HCL [Concomitant]
  4. ALLOPURINOL [Concomitant]

REACTIONS (3)
  - MULTIPLE SCLEROSIS [None]
  - NERVE INJURY [None]
  - PAIN IN EXTREMITY [None]
